FAERS Safety Report 11966940 (Version 2)
Quarter: 2016Q1

REPORT INFORMATION
  Report Type: Report from Study
  Country: US (occurrence: US)
  Receive Date: 20160127
  Receipt Date: 20160217
  Transmission Date: 20160526
  Serious: Yes (Other)
  Sender: FDA-Public Use
  Company Number: US-JNJFOC-20160120671

PATIENT
  Sex: Female
  Weight: 123.83 kg

DRUGS (6)
  1. CLOBETASOL [Concomitant]
     Active Substance: CLOBETASOL
     Route: 061
     Dates: start: 20140514
  2. WESTCORT [Concomitant]
     Active Substance: HYDROCORTISONE VALERATE
     Route: 061
     Dates: start: 20140218
  3. STELARA [Suspect]
     Active Substance: USTEKINUMAB
     Indication: PSORIASIS
     Dosage: ONE SAMPLE DOSE
     Route: 058
     Dates: start: 20160107, end: 20160107
  4. STELARA [Suspect]
     Active Substance: USTEKINUMAB
     Indication: PSORIASIS
     Dosage: ONE SAMPLE DOSE
     Route: 058
     Dates: start: 20160107, end: 20160107
  5. NIZORAL [Concomitant]
     Active Substance: KETOCONAZOLE
     Route: 061
     Dates: start: 20140218
  6. FLUCONAZOLE. [Concomitant]
     Active Substance: FLUCONAZOLE
     Route: 061
     Dates: start: 20150805

REACTIONS (1)
  - Malignant melanoma [Not Recovered/Not Resolved]
